FAERS Safety Report 7345170-0 (Version None)
Quarter: 2011Q1

REPORT INFORMATION
  Report Type: 
  Country: None (occurrence: None)
  Receive Date: 20110310
  Receipt Date: 20110228
  Transmission Date: 20110831
  Serious: Yes (Other)
  Sender: FDA-Public Use
  Company Number: US-CEPHALON-2010006575

PATIENT
  Sex: Female
  Weight: 82 kg

DRUGS (2)
  1. NUVIGIL [Suspect]
     Indication: MAJOR DEPRESSION
     Dosage: 150MG OR 200MG 4 TABLETS DAILY
     Route: 048
     Dates: start: 20101124, end: 20101221
  2. DEPAKOTE [Concomitant]
     Indication: BIPOLAR DISORDER
     Dates: start: 20090501

REACTIONS (2)
  - ABORTION SPONTANEOUS [None]
  - DRUG EXPOSURE DURING PREGNANCY [None]
